FAERS Safety Report 6155370-3 (Version None)
Quarter: 2009Q2

REPORT INFORMATION
  Report Type: 
  Country: None (occurrence: None)
  Receive Date: 20090413
  Receipt Date: 20090413
  Transmission Date: 20091009
  Serious: Yes (Hospitalization)
  Sender: FDA-Public Use
  Company Number: None

PATIENT
  Sex: Female
  Weight: 59.4212 kg

DRUGS (1)
  1. LISINOPRIL [Suspect]
     Dosage: 20 MG BID ORAL
     Route: 048

REACTIONS (3)
  - LIP SWELLING [None]
  - PRODUCT QUALITY ISSUE [None]
  - RASH [None]
